FAERS Safety Report 7809072-5 (Version None)
Quarter: 2011Q4

REPORT INFORMATION
  Report Type: 
  Country: None (occurrence: None)
  Receive Date: 20111012
  Receipt Date: 20111003
  Transmission Date: 20120403
  Serious: Yes (Disabling, Other)
  Sender: FDA-Public Use
  Company Number: US-UCBSA-042740

PATIENT
  Age: 61 Year
  Sex: Male
  Weight: 130 kg

DRUGS (20)
  1. LEVETIRACETAM [Suspect]
     Indication: CONVULSION
     Route: 048
     Dates: start: 20070101
  2. METOPROLOL TARTRATE [Concomitant]
     Route: 048
     Dates: start: 20070101
  3. VENLAFAXINE [Concomitant]
     Indication: DEPRESSION SUICIDAL
     Dosage: 300 MG DAILY
     Dates: start: 20070101
  4. LISINOPRIL [Concomitant]
     Indication: HYPERTENSION
     Dosage: UNKNOWN DOSAGE
  5. DIVALPROEX SODIUM EXTENDED RELEASE [Concomitant]
     Indication: CONVULSION
     Dosage: 2500 MG DAILY
     Route: 048
     Dates: start: 20100601
  6. LEVETIRACETAM [Suspect]
     Indication: GRAND MAL CONVULSION
     Route: 048
     Dates: start: 20070101
  7. METOPROLOL TARTRATE [Concomitant]
     Indication: HYPERTENSION
     Route: 048
     Dates: start: 20070101
  8. METOPROLOL TARTRATE [Concomitant]
     Indication: MIGRAINE
     Route: 048
     Dates: start: 20070101
  9. ASPIRIN [Concomitant]
     Indication: ANGINA PECTORIS
     Dosage: 81 MG DAILY
     Dates: start: 20070101
  10. TRAZOSIN HCL [Concomitant]
     Indication: BENIGN PROSTATIC HYPERPLASIA
     Dosage: 5 MG DAILY
     Dates: start: 20070101
  11. CLONAZEPAM [Concomitant]
     Indication: CONVULSION
     Dosage: UNKNOWN DOSAGE
  12. HYDROCHLOROTHIAZIDE [Concomitant]
     Indication: OEDEMA
     Dosage: 25 MG DAILY
     Dates: start: 20070101
  13. DIAZEPAM [Concomitant]
     Indication: ANXIETY
     Dosage: 10 MG DAILY
     Route: 048
     Dates: start: 20080101
  14. VENLAFAXINE [Concomitant]
     Indication: MAJOR DEPRESSION
     Dosage: 300 MG DAILY
     Dates: start: 20070101
  15. VENLAFAXINE [Concomitant]
     Indication: GENERALISED ANXIETY DISORDER
     Dosage: 300 MG DAILY
     Dates: start: 20070101
  16. HYDROCHLOROTHIAZIDE [Concomitant]
     Indication: HYPERTENSION
     Dosage: 25 MG DAILY
     Dates: start: 20070101
  17. LAMOTRIGINE [Suspect]
     Dosage: 100 MG DAILY
     Dates: start: 20091009, end: 20100201
  18. ESCITALOPRAM [Concomitant]
     Indication: MAJOR DEPRESSION
     Dosage: UNKNOWN DOSAGE
  19. OMEPRAZOLE [Concomitant]
     Indication: GASTROOESOPHAGEAL REFLUX DISEASE
     Dosage: 20 MG DAILY
     Route: 048
     Dates: start: 20070101
  20. SIMVASTATIN [Concomitant]
     Indication: BLOOD CHOLESTEROL
     Route: 048
     Dates: start: 20070101

REACTIONS (14)
  - HOMICIDE [None]
  - CHRONIC OBSTRUCTIVE PULMONARY DISEASE [None]
  - FATIGUE [None]
  - ANGER [None]
  - VIOLENCE-RELATED SYMPTOM [None]
  - ATAXIA [None]
  - SUICIDE ATTEMPT [None]
  - DEPRESSION [None]
  - AGGRESSION [None]
  - NIGHTMARE [None]
  - DISABILITY [None]
  - SUICIDAL IDEATION [None]
  - HEAD INJURY [None]
  - FRUSTRATION [None]
